FAERS Safety Report 4552617-1 (Version None)
Quarter: 2005Q1

REPORT INFORMATION
  Report Type: 
  Country: None (occurrence: None)
  Receive Date: 20050114
  Receipt Date: 20041124
  Transmission Date: 20050727
  Serious: No
  Sender: FDA-Public Use
  Company Number: US-GLAXOSMITHKLINE-A0535162A

PATIENT
  Age: 47 Year
  Sex: Female

DRUGS (12)
  1. IMITREX [Suspect]
     Indication: MIGRAINE
     Route: 058
     Dates: start: 19910101, end: 20010101
  2. IMITREX [Suspect]
     Dosage: 100MG AS REQUIRED
     Route: 048
     Dates: start: 20030101, end: 20040501
  3. BETABLOCKER [Concomitant]
  4. LESCOL [Concomitant]
  5. LASIX [Concomitant]
  6. MECLIZINE [Concomitant]
  7. PERCOCET [Concomitant]
  8. VICODIN [Concomitant]
  9. KADIAN [Concomitant]
  10. PHENERGAN [Concomitant]
  11. SUPPOSITORY [Concomitant]
     Indication: VOMITING
  12. PREDNISONE [Concomitant]

REACTIONS (9)
  - ASTHENIA [None]
  - DIZZINESS [None]
  - DRUG INEFFECTIVE [None]
  - GASTRIC NEOPLASM [None]
  - MUSCLE TIGHTNESS [None]
  - NAUSEA [None]
  - PARAESTHESIA [None]
  - VISION BLURRED [None]
  - WEIGHT INCREASED [None]
